FAERS Safety Report 20200775 (Version 1)
Quarter: 2021Q4

REPORT INFORMATION
  Report Type: Spontaneous
  Country: US (occurrence: None)
  Receive Date: 20211217
  Receipt Date: 20211217
  Transmission Date: 20220303
  Serious: No
  Sender: FDA-Public Use
  Company Number: US-Merck Healthcare KGaA-9286628

PATIENT
  Age: 38 Year
  Sex: Male

DRUGS (1)
  1. MAVENCLAD [Suspect]
     Active Substance: CLADRIBINE
     Indication: Multiple sclerosis
     Route: 048
     Dates: start: 202111

REACTIONS (3)
  - Fatigue [Unknown]
  - Muscular weakness [Unknown]
  - Nausea [Unknown]

NARRATIVE: CASE EVENT DATE: 20210101
